FAERS Safety Report 7767382-4 (Version None)
Quarter: 2011Q3

REPORT INFORMATION
  Report Type: 
  Country: None (occurrence: None)
  Receive Date: 20110922
  Receipt Date: 20101015
  Transmission Date: 20111222
  Serious: No
  Sender: FDA-Public Use
  Company Number: US-ASTRAZENECA-2007UW12054

PATIENT
  Age: 18857 Day
  Sex: Female
  Weight: 103.4 kg

DRUGS (19)
  1. SEROQUEL [Suspect]
     Indication: DEPRESSION
     Route: 048
     Dates: start: 20020101, end: 20060101
  2. ZANTAC [Concomitant]
     Dates: start: 20050421
  3. TOPAMAX [Concomitant]
     Dates: start: 20060105
  4. SEROQUEL [Suspect]
     Indication: BIPOLAR DISORDER
     Route: 048
     Dates: start: 20020101, end: 20060101
  5. SEROQUEL [Suspect]
     Dosage: 25 MG - 400 MG
     Route: 048
     Dates: start: 20031125
  6. ALPRAZOLAM [Concomitant]
     Dates: start: 20031125
  7. PROZAC [Concomitant]
     Dates: start: 20031222
  8. PRILOSEC [Concomitant]
     Dosage: 20-40 MG DAILY
     Dates: start: 20030105
  9. MIRTAZAPINE [Concomitant]
     Dates: start: 20031230
  10. TRAZODONE HYDROCHLORIDE [Concomitant]
  11. AMBIEN [Concomitant]
     Indication: INSOMNIA
     Dates: start: 20060220
  12. RISPERDAL [Concomitant]
  13. SEROQUEL [Suspect]
     Dosage: 25 MG - 200 MG
     Route: 048
     Dates: start: 20030918, end: 20060801
  14. LAMICTAL [Concomitant]
     Dates: start: 20060220
  15. GEODON [Concomitant]
     Dosage: 120MG AT NIGHT OR 80MG AT DAYTIME
  16. SEROQUEL [Suspect]
     Dosage: 25 MG - 200 MG
     Route: 048
     Dates: start: 20030918, end: 20060801
  17. SEROQUEL [Suspect]
     Dosage: 25 MG - 400 MG
     Route: 048
     Dates: start: 20031125
  18. KLONOPIN [Concomitant]
     Dosage: 5 MG TO 15 MG
     Dates: start: 20060105
  19. CITALOPRAM HYDROBROMIDE [Concomitant]

REACTIONS (6)
  - THIRST [None]
  - TYPE 2 DIABETES MELLITUS [None]
  - DIABETES MELLITUS [None]
  - BURNING SENSATION [None]
  - WEIGHT INCREASED [None]
  - GLUCOSE TOLERANCE IMPAIRED [None]
